FAERS Safety Report 8508560-6 (Version None)
Quarter: 2012Q3

REPORT INFORMATION
  Report Type: 
  Country: None (occurrence: None)
  Receive Date: 20120713
  Receipt Date: 20120704
  Transmission Date: 20120928
  Serious: Yes (Hospitalization)
  Sender: FDA-Public Use
  Company Number: PHHY2012DE059283

PATIENT
  Sex: Male
  Weight: 74 kg

DRUGS (9)
  1. ZOLEDRONOC ACID [Suspect]
     Indication: BONE DISORDER
     Dosage: 4 MG, EVERY 4 WEEKS
     Route: 042
     Dates: start: 20110615, end: 20111012
  2. TOPOTECAN [Concomitant]
     Indication: BRONCHIAL CARCINOMA
     Dosage: 1,5MG/M2; DAY 1-4; Q3
     Route: 042
     Dates: start: 20110726, end: 20111014
  3. POLYETHYLENE GLYCOL [Concomitant]
     Dosage: 2 SACHETS
     Dates: start: 20110303
  4. BUPRENORPHINE [Concomitant]
     Dosage: 70 UG/HR, UNK
     Route: 062
     Dates: start: 20110823
  5. BUPRENORPHINE [Concomitant]
     Dosage: 30 UG/HR, UNK
     Route: 062
     Dates: start: 20110608, end: 20110823
  6. PANTOPRAZOLE [Concomitant]
     Dosage: 20 MG, UNK
     Dates: start: 20110118
  7. DIPYRONE TAB [Concomitant]
     Dosage: 90 DRP, UNK
  8. DICLOFENAC SODIUM [Concomitant]
     Dosage: 100 MG, UNK
     Dates: start: 20110222
  9. METOCLOPRAMIDE [Concomitant]
     Dosage: 45 DRP, UNK

REACTIONS (4)
  - CHOLESTASIS [None]
  - CHOLECYSTITIS [None]
  - INGUINAL HERNIA [None]
  - PAIN [None]
